FAERS Safety Report 5298786-X (Version None)
Quarter: 2007Q2

REPORT INFORMATION
  Report Type: 
  Country: None (occurrence: None)
  Receive Date: 20070417
  Receipt Date: 20070405
  Transmission Date: 20071010
  Serious: Yes (Other)
  Sender: FDA-Public Use
  Company Number: GB-BRISTOL-MYERS SQUIBB COMPANY-13745922

PATIENT
  Age: 16 Year
  Sex: Female

DRUGS (4)
  1. TRAZODONE HCL [Suspect]
     Indication: ANXIETY
     Route: 048
     Dates: start: 20070222, end: 20070316
  2. NORGESTIMATE AND ETHINYL ESTRADIOL [Concomitant]
     Dates: start: 20061001
  3. CITALOPRAM HYDROBROMIDE [Concomitant]
     Dates: start: 20061101, end: 20070201
  4. MELATONIN [Concomitant]
     Dates: start: 20050101

REACTIONS (5)
  - ERYTHEMA [None]
  - HAIR DISORDER [None]
  - HYPERHIDROSIS [None]
  - MICTURITION DISORDER [None]
  - SWELLING FACE [None]
